FAERS Safety Report 6273369-3 (Version None)
Quarter: 2009Q3

REPORT INFORMATION
  Report Type: 
  Country: None (occurrence: None)
  Receive Date: 20090715
  Receipt Date: 20090701
  Transmission Date: 20100115
  Serious: Yes (Death)
  Sender: FDA-Public Use
  Company Number: 1000006207

PATIENT
  Age: 41 Year
  Sex: Male

DRUGS (7)
  1. ESCITALOPRAM [Suspect]
     Dosage: 1120 MG (1120 MG, ONCE) ORAL 10 MG (10 MG, 1 IN 1 D), ORAL 20 MG (20 MG, 1 IN 1 D), ORAL
     Route: 048
     Dates: start: 20071101, end: 20090224
  2. ESCITALOPRAM [Suspect]
     Dosage: 1120 MG (1120 MG, ONCE) ORAL 10 MG (10 MG, 1 IN 1 D), ORAL 20 MG (20 MG, 1 IN 1 D), ORAL
     Route: 048
     Dates: start: 20090506, end: 20090506
  3. ESCITALOPRAM [Suspect]
     Dosage: 1120 MG (1120 MG, ONCE) ORAL 10 MG (10 MG, 1 IN 1 D), ORAL 20 MG (20 MG, 1 IN 1 D), ORAL
     Route: 048
     Dates: start: 20090225
  4. SOLIAN (400 MILLIGRAM) [Suspect]
     Dosage: 4 BOXES (ONCE), ORAL
     Route: 048
     Dates: start: 20090506, end: 20090506
  5. SOLIAN (400 MILLIGRAM) [Suspect]
     Dosage: 4 BOXES (ONCE), ORAL
     Route: 048
     Dates: start: 20071109
  6. TAHOR (20 MILLIGRAM) [Suspect]
     Indication: HYPERCHOLESTEROLAEMIA
     Dosage: 2 BOXES (ONCE), ORAL
     Route: 048
     Dates: start: 20090506, end: 20090506
  7. PIPORTIL (SOLUTION) [Concomitant]

REACTIONS (2)
  - COMPLETED SUICIDE [None]
  - MULTIPLE DRUG OVERDOSE INTENTIONAL [None]
